FAERS Safety Report 9675828 (Version 2)
Quarter: 2013Q4

REPORT INFORMATION
  Report Type: Spontaneous
  Country: US (occurrence: None)
  Receive Date: 20131105
  Receipt Date: 20131119
  Transmission Date: 20140711
  Serious: Yes (Other)
  Sender: FDA-Public Use
  Company Number: 2013US002750

PATIENT
  Age: 60 Year
  Sex: Male
  Weight: 117 kg

DRUGS (2)
  1. ICLUSIG [Suspect]
     Indication: CHRONIC MYELOID LEUKAEMIA
     Route: 048
     Dates: start: 20130815, end: 20131013
  2. NORVASC (AMLODIPINE BESILATE) [Concomitant]

REACTIONS (3)
  - Transplant [None]
  - Platelet count decreased [None]
  - Red blood cell count decreased [None]
